FAERS Safety Report 9579157 (Version 1)
Quarter: 2013Q4

REPORT INFORMATION
  Report Type: Spontaneous
  Country: US (occurrence: US)
  Receive Date: 20131001
  Receipt Date: 20131001
  Transmission Date: 20140711
  Serious: No
  Sender: FDA-Public Use
  Company Number: US-AMGEN-USASP2013016264

PATIENT
  Age: 48 Year
  Sex: Male
  Weight: 92.06 kg

DRUGS (9)
  1. ENBREL [Suspect]
     Indication: PRODUCT USED FOR UNKNOWN INDICATION
     Dosage: 50 MG, QWK
     Route: 058
  2. ZITHROMAX [Concomitant]
     Dosage: 500 MG, UNK
  3. NASONEX [Concomitant]
     Dosage: 50 MCG/AC
  4. ADVIL                              /00044201/ [Concomitant]
     Dosage: 200 MG, UNK
  5. FISH OIL [Concomitant]
     Dosage: UNK
  6. ALEVE [Concomitant]
     Dosage: 220 MG, UNK
  7. SUPER B COMPL [Concomitant]
     Dosage: UNK
  8. MULTIVITAMINS, PLAIN [Concomitant]
     Dosage: UNK
  9. TYLENOL                            /00020001/ [Concomitant]
     Dosage: 500 MG, UNK

REACTIONS (1)
  - Pneumonia [Unknown]
